FAERS Safety Report 4605761-4 (Version None)
Quarter: 2005Q1

REPORT INFORMATION
  Report Type: 
  Country: None (occurrence: None)
  Receive Date: 20050311
  Receipt Date: 20041108
  Transmission Date: 20050727
  Serious: Yes (Death, Life-Threatening)
  Sender: FDA-Public Use
  Company Number: US-MERCK-0411USA01501

PATIENT
  Age: 51 Year
  Sex: Male
  Weight: 62 kg

DRUGS (6)
  1. VIOXX [Suspect]
     Indication: BACK PAIN
     Route: 048
     Dates: start: 20031201, end: 20031201
  2. VIOXX [Suspect]
     Route: 048
     Dates: start: 20040505, end: 20040712
  3. OXYCONTIN [Concomitant]
     Indication: METASTASIS
     Route: 048
     Dates: start: 20040601
  4. PREDNISONE [Concomitant]
     Indication: RENAL FAILURE
     Route: 048
     Dates: start: 20040702
  5. DILANTIN [Concomitant]
     Indication: METASTASES TO CENTRAL NERVOUS SYSTEM
     Route: 048
     Dates: start: 20040804
  6. ATIVAN [Concomitant]
     Route: 048
     Dates: start: 20040801

REACTIONS (4)
  - ANXIETY [None]
  - CARDIAC ARREST [None]
  - MYOCARDIAL INFARCTION [None]
  - RENAL FAILURE [None]
